FAERS Safety Report 6870991-8 (Version None)
Quarter: 2010Q2

REPORT INFORMATION
  Report Type: 
  Country: None (occurrence: None)
  Receive Date: 20100528
  Receipt Date: 20100326
  Transmission Date: 20101027
  Serious: No
  Sender: FDA-Public Use
  Company Number: 2010039672

PATIENT

DRUGS (1)
  1. TOVIAZ [Suspect]
     Dosage: 4 MG

REACTIONS (1)
  - CONSTIPATION [None]
